FAERS Safety Report 10354717 (Version 1)
Quarter: 2014Q3

REPORT INFORMATION
  Report Type: Spontaneous
  Country: US (occurrence: None)
  Receive Date: 20140729
  Receipt Date: 20140729
  Transmission Date: 20150326
  Serious: Yes (Disabling)
  Sender: FDA-Public Use
  Company Number: None

PATIENT
  Age: 32 Year
  Sex: Female
  Weight: 91.63 kg

DRUGS (1)
  1. ATIVAN [Suspect]
     Active Substance: LORAZEPAM
     Indication: SOCIAL PHOBIA
     Dosage: 1 TWICE DAILY TAKEN BY MOUTH
     Route: 048

REACTIONS (12)
  - Weight increased [None]
  - Salivary gland disorder [None]
  - Salivary gland enlargement [None]
  - Pruritus [None]
  - Fluid retention [None]
  - Lymphadenopathy [None]
  - Lymph node pain [None]
  - Autoimmune disorder [None]
  - Swelling face [None]
  - Hypersensitivity [None]
  - Salivary hypersecretion [None]
  - Soft tissue inflammation [None]

NARRATIVE: CASE EVENT DATE: 20050701
